FAERS Safety Report 8773585 (Version 2)
Quarter: 2012Q4

REPORT INFORMATION
  Report Type: 
  Country: US (occurrence: US)
  Receive Date: 20120907
  Receipt Date: 20120917
  Transmission Date: 20130627
  Serious: No
  Sender: FDA-Public Use
  Company Number: US-ASTRAZENECA-2012SE65022

PATIENT
  Age: 39 Year
  Sex: Female
  Weight: 70.3 kg

DRUGS (1)
  1. ZOMIG [Suspect]
     Indication: MIGRAINE
     Route: 045
     Dates: start: 2007

REACTIONS (4)
  - Migraine [Unknown]
  - Headache [Not Recovered/Not Resolved]
  - Drug dose omission [Unknown]
  - Off label use [Unknown]
